FAERS Safety Report 15979620 (Version 10)
Quarter: 2019Q4

REPORT INFORMATION
  Report Type: Spontaneous
  Country: US (occurrence: US)
  Receive Date: 20190219
  Receipt Date: 20191224
  Transmission Date: 20200122
  Serious: Yes (Hospitalization, Other)
  Sender: FDA-Public Use
  Company Number: US-PFIZER INC-2019073606

PATIENT
  Age: 64 Year
  Sex: Female
  Weight: 52.15 kg

DRUGS (2)
  1. LETROZOLE. [Concomitant]
     Active Substance: LETROZOLE
     Dosage: 2.5 MG, UNK
  2. IBRANCE [Suspect]
     Active Substance: PALBOCICLIB
     Indication: BREAST CANCER FEMALE
     Dosage: 125 MG, CYCLIC (1 CAPSULE; 1-21 DAYS)
     Route: 048
     Dates: start: 20190129

REACTIONS (19)
  - Anxiety [Unknown]
  - Bronchitis [Unknown]
  - Chest pain [Unknown]
  - Pain [Unknown]
  - Weight decreased [Unknown]
  - Pain in extremity [Unknown]
  - Arthralgia [Unknown]
  - Asthenia [Unknown]
  - Breast pain [Unknown]
  - Pruritus [Unknown]
  - Decreased appetite [Unknown]
  - Abdominal discomfort [Unknown]
  - Anaemia [Unknown]
  - Dyspepsia [Unknown]
  - Dyspnoea [Not Recovered/Not Resolved]
  - Pruritus [Unknown]
  - Abdominal pain upper [Unknown]
  - Fatigue [Unknown]
  - Pulmonary thrombosis [Not Recovered/Not Resolved]

NARRATIVE: CASE EVENT DATE: 20190208
